FAERS Safety Report 5852734-X (Version None)
Quarter: 2008Q3

REPORT INFORMATION
  Report Type: 
  Country: None (occurrence: None)
  Receive Date: 20080819
  Receipt Date: 20080804
  Transmission Date: 20090109
  Serious: Yes (Hospitalization)
  Sender: FDA-Public Use
  Company Number: 100#08#2008-03903

PATIENT
  Age: 51 Year
  Sex: Female

DRUGS (5)
  1. THEOPHYLLINE [Suspect]
     Indication: ASTHMA
     Dosage: 200 MG
     Dates: start: 19980101, end: 20030804
  2. CALCIUM LACTATE (CALCIUM LACTATE) [Suspect]
     Indication: OSTEOPOROSIS
  3. ALFACALCIDOL (ALFACALCIDOL) [Suspect]
     Indication: OSTEOPOROSIS
  4. PREDNISONE [Concomitant]
  5. PAMIDRONIC ACID (PAMIDRONIC ACID) [Concomitant]

REACTIONS (5)
  - BLOOD PARATHYROID HORMONE DECREASED [None]
  - HYPERCALCAEMIA [None]
  - HYPERTHYROIDISM [None]
  - RENAL IMPAIRMENT [None]
  - VITAMIN D DECREASED [None]
